FAERS Safety Report 9340773 (Version 1)
Quarter: 2013Q2

REPORT INFORMATION
  Report Type: Spontaneous
  Country: FR (occurrence: FR)
  Receive Date: 20130610
  Receipt Date: 20130610
  Transmission Date: 20140414
  Serious: Yes (Hospitalization)
  Sender: FDA-Public Use
  Company Number: PHHY2013FR058113

PATIENT
  Age: 86 Year
  Sex: Female

DRUGS (4)
  1. ESIDREX [Suspect]
     Indication: HYPERTENSION
     Dosage: 25 MG, UNK
     Route: 048
     Dates: end: 20130323
  2. SIMVASTATIN [Suspect]
     Dosage: UNK UKN, UNK
     Route: 048
     Dates: end: 20130324
  3. AMLOR [Concomitant]
     Dosage: 10 MG, UNK
  4. PERINDOPRIL [Concomitant]

REACTIONS (2)
  - Hyponatraemia [Recovered/Resolved]
  - Fall [Recovered/Resolved]
